FAERS Safety Report 8995161 (Version 1)
Quarter: 2013Q1

REPORT INFORMATION
  Report Type: Report from Study
  Country: AR (occurrence: AR)
  Receive Date: 20130102
  Receipt Date: 20130102
  Transmission Date: 20140127
  Serious: Yes (Death, Life-Threatening, Hospitalization)
  Sender: FDA-Public Use
  Company Number: AR-BRISTOL-MYERS SQUIBB COMPANY-15140296

PATIENT
  Age: 82 Year
  Sex: Male

DRUGS (4)
  1. DASATINIB [Suspect]
     Indication: PROSTATE CANCER
     Dosage: INTERRUPTED 04-JUN-2010
     Route: 048
     Dates: start: 20091210, end: 20100604
  2. DOCETAXEL [Suspect]
     Indication: PROSTATE CANCER
     Dosage: INTERRUPTED ON 27MAY10
     Route: 042
     Dates: start: 20091210, end: 20100527
  3. PREDNISONE [Suspect]
     Indication: PROSTATE CANCER
     Dosage: INTERRUPTED ON 04JUN10
     Route: 048
     Dates: start: 20091210, end: 20100604
  4. DEXAMETHASONE [Suspect]
     Indication: PREMEDICATION
     Dosage: 8 MG AT 12 HOURS, 3 HOURS AND 1 HOUR PRIOR TO DOCETAXEL INFUSION

REACTIONS (2)
  - Febrile neutropenia [Fatal]
  - Respiratory failure [Fatal]
